FAERS Safety Report 26155296 (Version 2)
Quarter: 2025Q4

REPORT INFORMATION
  Report Type: Other
  Country: US (occurrence: US)
  Receive Date: 20251215
  Receipt Date: 20251219
  Transmission Date: 20260117
  Serious: Yes (Hospitalization)
  Sender: Onesource Specialty Pharma
  Company Number: US-STRIDES ARCOLAB LIMITED-2025OS001427

PATIENT

DRUGS (1)
  1. OMEGA-3-ACID ETHYL ESTERS [Suspect]
     Active Substance: OMEGA-3-ACID ETHYL ESTERS
     Indication: Product used for unknown indication
     Dosage: UNK, CAPSULE
     Route: 065

REACTIONS (13)
  - Dizziness [Unknown]
  - Eye pain [Unknown]
  - Chest discomfort [Unknown]
  - Heart rate increased [Unknown]
  - Pollakiuria [Unknown]
  - Wrong product administered [Unknown]
  - Oropharyngeal pain [Unknown]
  - Nausea [Unknown]
  - Headache [Unknown]
  - Antibiotic therapy [Unknown]
  - Product quality issue [Unknown]
  - Drug hypersensitivity [Unknown]
  - Abdominal distension [Unknown]

NARRATIVE: CASE EVENT DATE: 20250101
